FAERS Safety Report 11537683 (Version 2)
Quarter: 2015Q3

REPORT INFORMATION
  Report Type: Spontaneous
  Country: US (occurrence: US)
  Receive Date: 20150922
  Receipt Date: 20150929
  Transmission Date: 20151125
  Serious: Yes (Other)
  Sender: FDA-Public Use
  Company Number: US-BAUSCH-BL-2015-021284

PATIENT
  Age: 59 Year
  Sex: Female
  Weight: 116.68 kg

DRUGS (3)
  1. ANUSOL HC SUPPOSITORY [Suspect]
     Active Substance: HYDROCORTISONE ACETATE
     Indication: SARCOIDOSIS
  2. ANUSOL HC SUPPOSITORY [Suspect]
     Active Substance: HYDROCORTISONE ACETATE
     Indication: LICHEN PLANUS
  3. ANUSOL HC [Suspect]
     Active Substance: HYDROCORTISONE
     Dosage: DAILY
     Route: 061

REACTIONS (2)
  - Drug dose omission [Unknown]
  - Retinal injury [Unknown]

NARRATIVE: CASE EVENT DATE: 201507
